FAERS Safety Report 7602235-3 (Version None)
Quarter: 2011Q3

REPORT INFORMATION
  Report Type: 
  Country: None (occurrence: None)
  Receive Date: 20110711
  Receipt Date: 20110630
  Transmission Date: 20111222
  Serious: Yes (Disabling)
  Sender: FDA-Public Use
  Company Number: US-ASTRAZENECA-2010SE33724

PATIENT
  Age: 84 Year
  Sex: Female
  Weight: 74.8 kg

DRUGS (9)
  1. ALPRAZOLAM [Concomitant]
  2. ASPIRIN [Concomitant]
  3. SEROQUEL [Suspect]
     Indication: INSOMNIA
     Route: 048
     Dates: start: 20060101
  4. HYDROCHLOROTHIAZIDE [Concomitant]
  5. LOTENSIN [Concomitant]
  6. SEROQUEL [Suspect]
     Indication: SLEEP DISORDER
     Route: 048
     Dates: start: 20060101
  7. PRILOSEC [Concomitant]
  8. XANAX [Concomitant]
  9. VYTORIN [Concomitant]

REACTIONS (7)
  - SLEEP DISORDER [None]
  - ROAD TRAFFIC ACCIDENT [None]
  - PAIN IN EXTREMITY [None]
  - MOBILITY DECREASED [None]
  - DIABETES MELLITUS [None]
  - DRUG INEFFECTIVE FOR UNAPPROVED INDICATION [None]
  - WALKING AID USER [None]
